FAERS Safety Report 4957276-1 (Version None)
Quarter: 2006Q1

REPORT INFORMATION
  Report Type: 
  Country: None (occurrence: None)
  Receive Date: 20060329
  Receipt Date: 20051021
  Transmission Date: 20060701
  Serious: Yes (Death, Hospitalization)
  Sender: FDA-Public Use
  Company Number: US-MERCK-0510USA08826

PATIENT
  Age: 41 Year
  Sex: Male
  Weight: 68 kg

DRUGS (2)
  1. VIOXX [Suspect]
     Indication: ARTHRITIS
     Route: 048
     Dates: start: 20031001, end: 20040602
  2. VIOXX [Suspect]
     Indication: CHEST PAIN
     Route: 048
     Dates: start: 20031001, end: 20040602

REACTIONS (5)
  - ARRHYTHMIA [None]
  - CORONARY ARTERY INSUFFICIENCY [None]
  - DEATH [None]
  - HOSPITALISATION [None]
  - MYOCARDIAL INFARCTION [None]
